FAERS Safety Report 9135037 (Version 1)
Quarter: 2013Q1

REPORT INFORMATION
  Report Type: Spontaneous
  Country: US (occurrence: US)
  Receive Date: 20130304
  Receipt Date: 20130304
  Transmission Date: 20140127
  Serious: Yes (Hospitalization, Other)
  Sender: FDA-Public Use
  Company Number: US-COVIDIEN/TYCO HEALTHCARE/MALLINCKRODT-T201300976

PATIENT
  Age: 88 Year
  Sex: Male

DRUGS (3)
  1. OXYCODONE/ACETAMINOPHEN [Suspect]
     Indication: BACK PAIN
     Dosage: 5/325 MG, 1 TAB Q 4 HRS
     Route: 048
     Dates: start: 20130122
  2. DILAUDID [Suspect]
     Dosage: UNK
     Dates: start: 201302
  3. OXYCODONE/APAP                     /01601701/ [Concomitant]
     Indication: BACK PAIN
     Dosage: 5/325 MG, PRN
     Dates: start: 201211, end: 20130121

REACTIONS (6)
  - Psychotic disorder [Unknown]
  - Abdominal pain [Not Recovered/Not Resolved]
  - Delusion [Unknown]
  - Speech disorder [Unknown]
  - Crying [Unknown]
  - Restlessness [Unknown]
